FAERS Safety Report 10262106 (Version 2)
Quarter: 2014Q2

REPORT INFORMATION
  Report Type: Spontaneous
  Country: US (occurrence: US)
  Receive Date: 20140626
  Receipt Date: 20140630
  Transmission Date: 20141212
  Serious: Yes (Other)
  Sender: FDA-Public Use
  Company Number: US-TEVA-489957USA

PATIENT
  Age: 40 Year
  Sex: Male

DRUGS (1)
  1. COPAXONE [Suspect]
     Indication: MULTIPLE SCLEROSIS
     Dates: start: 20080412

REACTIONS (3)
  - Multiple sclerosis relapse [Unknown]
  - Blindness transient [Unknown]
  - Optic neuritis [Unknown]
